FAERS Safety Report 6009388-1 (Version None)
Quarter: 2008Q4

REPORT INFORMATION
  Report Type: 
  Country: None (occurrence: None)
  Receive Date: 20081217
  Receipt Date: 20081003
  Transmission Date: 20090506
  Serious: Yes (Hospitalization)
  Sender: FDA-Public Use
  Company Number: US-BAYER-200832265NA

PATIENT
  Age: 32 Year
  Sex: Female

DRUGS (2)
  1. YAZ [Suspect]
     Indication: ACNE
     Route: 048
     Dates: start: 20080301, end: 20080820
  2. BENZACLINS [Concomitant]
     Indication: ACNE

REACTIONS (2)
  - PULMONARY EMBOLISM [None]
  - URINARY TRACT INFECTION [None]
